FAERS Safety Report 9445963 (Version 1)
Quarter: 2013Q3

REPORT INFORMATION
  Report Type: Spontaneous
  Country: US (occurrence: US)
  Receive Date: 20130807
  Receipt Date: 20130807
  Transmission Date: 20140515
  Serious: Yes (Hospitalization)
  Sender: FDA-Public Use
  Company Number: US-ELI_LILLY_AND_COMPANY-US201307009881

PATIENT
  Age: 77 Year
  Sex: Female
  Weight: 87.98 kg

DRUGS (1)
  1. HUMALOG LISPRO [Suspect]

REACTIONS (2)
  - Gastric ulcer [Unknown]
  - Blood glucose increased [Unknown]
